FAERS Safety Report 5026763-2 (Version None)
Quarter: 2006Q2

REPORT INFORMATION
  Report Type: 
  Country: None (occurrence: None)
  Receive Date: 20060608
  Receipt Date: 20060531
  Transmission Date: 20061013
  Serious: Yes (Other)
  Sender: FDA-Public Use
  Company Number: 2006070439

PATIENT
  Age: 18 Year
  Sex: Male
  Weight: 60.3284 kg

DRUGS (2)
  1. ADVANCED RELIEF VISINE (POVIDONE, DEXTRAN 70, POLYETHYLENE GLYCOL, TET [Suspect]
     Indication: EYE IRRITATION
     Dosage: 1-2 DROPS ONCE IN LEFT EYE, OPHTHALMIC
     Route: 047
     Dates: start: 20060529, end: 20060529
  2. ADVANCED RELIEF VISINE (POVIDONE, DEXTRAN 70, POLYETHYLENE GLYCOL, TET [Suspect]

REACTIONS (6)
  - CHEMICAL BURNS OF EYE [None]
  - EYE DISCHARGE [None]
  - EYE PAIN [None]
  - EYE SWELLING [None]
  - OCULAR HYPERAEMIA [None]
  - SUPERFICIAL INJURY OF EYE [None]
